FAERS Safety Report 9245361 (Version 1)
Quarter: 2013Q1

REPORT INFORMATION
  Report Type: Spontaneous
  Country: US (occurrence: None)
  Receive Date: 20121123
  Receipt Date: 20121123
  Transmission Date: 20140127
  Serious: No
  Sender: FDA-Public Use
  Company Number: 362368

PATIENT
  Sex: Female

DRUGS (2)
  1. VICTOZA (LIRAGLUTIDE) SOLUTION FOR INJECTION, 6 MG/ML [Suspect]
     Indication: TYPE 2 DIABETES MELLITUS
     Route: 058
     Dates: start: 201209, end: 201210
  2. JANUMET (METFORMIN  HYDROCHLORIDE, SITAGLIPTIN PHOPSHATE MONOHYDRATE) [Concomitant]

REACTIONS (2)
  - Pruritus generalised [None]
  - Rash [None]
